FAERS Safety Report 18830880 (Version 2)
Quarter: 2022Q3

REPORT INFORMATION
  Report Type: Spontaneous
  Country: CA (occurrence: CA)
  Receive Date: 20210203
  Receipt Date: 20220712
  Transmission Date: 20221027
  Serious: Yes (Other)
  Sender: FDA-Public Use
  Company Number: CA-GLAXOSMITHKLINE-CA2021GSK021385

PATIENT

DRUGS (4)
  1. AVANDIA [Suspect]
     Active Substance: ROSIGLITAZONE MALEATE
     Indication: Diabetes mellitus
     Dosage: UNK
     Route: 048
     Dates: end: 20020201
  2. AVANDIA [Suspect]
     Active Substance: ROSIGLITAZONE MALEATE
     Dosage: 8 MG
     Route: 048
  3. AVANDAMET [Suspect]
     Active Substance: METFORMIN HYDROCHLORIDE\ROSIGLITAZONE MALEATE
     Indication: Diabetes mellitus
     Dosage: 2 MG
     Route: 048
  4. AVANDAMET [Suspect]
     Active Substance: METFORMIN HYDROCHLORIDE\ROSIGLITAZONE MALEATE
     Dosage: 4 MG
     Route: 048

REACTIONS (2)
  - Cerebrovascular accident [Unknown]
  - Cardiac disorder [Unknown]
